FAERS Safety Report 10360530 (Version 1)
Quarter: 2014Q3

REPORT INFORMATION
  Report Type: Spontaneous
  Country: AU (occurrence: None)
  Receive Date: 20140730
  Receipt Date: 20140730
  Transmission Date: 20150326
  Serious: Yes (Hospitalization)
  Sender: FDA-Public Use
  Company Number: 2014-20066

PATIENT
  Age: 79 Year
  Sex: Female

DRUGS (2)
  1. EYLEA [Suspect]
     Active Substance: AFLIBERCEPT
     Dosage: 2 MG MILLIGRAM(S)  INTRAOCULAR  01/24/2013 TO ONGOING THERAPY
     Route: 031
     Dates: start: 20130124
  2. EYLEA [Suspect]
     Active Substance: AFLIBERCEPT
     Indication: AGE-RELATED MACULAR DEGENERATION
     Dosage: 2 MG MILLIGRAM(S)  INTRAOCULAR  01/24/2013 TO ONGOING THERAPY
     Route: 031
     Dates: start: 20130124

REACTIONS (2)
  - Abdominal distension [None]
  - Feeling abnormal [None]

NARRATIVE: CASE EVENT DATE: 20140721
